FAERS Safety Report 4411539-7 (Version None)
Quarter: 2004Q3

REPORT INFORMATION
  Report Type: 
  Country: None (occurrence: None)
  Receive Date: 20040730
  Receipt Date: 20030226
  Transmission Date: 20050211
  Serious: Yes (Disabling, Other)
  Sender: FDA-Public Use
  Company Number: US-BRISTOL-MYERS SQUIBB COMPANY-12197463

PATIENT
  Age: 23 Year
  Sex: Male
  Weight: 54 kg

DRUGS (10)
  1. ZERIT [Suspect]
     Indication: ACQUIRED IMMUNODEFICIENCY SYNDROME
     Route: 048
     Dates: start: 19980114
  2. VIDEX [Suspect]
     Indication: ACQUIRED IMMUNODEFICIENCY SYNDROME
     Dosage: 400 MG UNTIL 4/20/01, AND THEN 250 MG FROM 4/21/01 CONTINUING.
     Route: 048
  3. STOCRIN CAPS [Suspect]
     Indication: ACQUIRED IMMUNODEFICIENCY SYNDROME
     Route: 048
     Dates: start: 19990329, end: 20020303
  4. VIRACEPT [Suspect]
     Indication: ACQUIRED IMMUNODEFICIENCY SYNDROME
     Dosage: INITIATED AT 500 MG THREE TIMES DAILY TO 11-NOV-1997, RESTARTED 17-AUG-1999
     Route: 048
     Dates: start: 19970804, end: 20020303
  5. ZIAGEN [Suspect]
     Indication: ACQUIRED IMMUNODEFICIENCY SYNDROME
     Route: 048
     Dates: start: 19990329
  6. KALETRA [Suspect]
     Indication: ACQUIRED IMMUNODEFICIENCY SYNDROME
     Dosage: DOSAGE FORM=DOSE
     Route: 048
     Dates: start: 20020304
  7. SOMATROPIN [Suspect]
     Indication: WEIGHT DECREASED
     Route: 042
     Dates: start: 20010423
  8. LOPEMIN [Concomitant]
     Dosage: THERAPY INTERRUPTED 10/31/99, RESTARTED 4/1/01
     Route: 048
     Dates: start: 19981101
  9. RECOMBINATE [Concomitant]
     Dosage: DOSAGE FORM = UNITS
     Route: 042
     Dates: start: 19991101
  10. AMPRENAVIR [Concomitant]
     Dates: start: 19990510, end: 19990817

REACTIONS (3)
  - ASEPTIC NECROSIS BONE [None]
  - CACHEXIA [None]
  - HYPERLACTACIDAEMIA [None]
